FAERS Safety Report 12639766 (Version 1)
Quarter: 2016Q3

REPORT INFORMATION
  Report Type: Spontaneous
  Country: US (occurrence: None)
  Receive Date: 20160809
  Receipt Date: 20160809
  Transmission Date: 20161109
  Serious: No
  Sender: FDA-Public Use
  Company Number: None

PATIENT
  Age: 75 Year
  Sex: Male
  Weight: 51.26 kg

DRUGS (1)
  1. TICLOPIDINE [Suspect]
     Active Substance: TICLOPIDINE
     Indication: CORONARY ARTERIAL STENT INSERTION
     Route: 048
     Dates: start: 20100818, end: 20100830

REACTIONS (1)
  - Haematuria [None]

NARRATIVE: CASE EVENT DATE: 20100830
